FAERS Safety Report 24976984 (Version 1)
Quarter: 2025Q1

REPORT INFORMATION
  Report Type: Spontaneous
  Country: CN (occurrence: CN)
  Receive Date: 20250217
  Receipt Date: 20250217
  Transmission Date: 20250409
  Serious: No
  Sender: ALEXION PHARMACEUTICALS
  Company Number: CN-AstraZeneca-2021A572180

PATIENT
  Age: 38 Year
  Weight: 56 kg

DRUGS (2)
  1. NEXIUM [Suspect]
     Active Substance: ESOMEPRAZOLE MAGNESIUM
     Indication: Chronic gastritis
     Dosage: 20 MILLIGRAM, QD
  2. HYDROTALCITE [Concomitant]
     Active Substance: HYDROTALCITE
     Indication: Chronic gastritis
     Dosage: 1 GRAM, TID

REACTIONS (3)
  - Tinnitus [Recovering/Resolving]
  - Ear pain [Recovering/Resolving]
  - Discomfort [Recovering/Resolving]
